FAERS Safety Report 19533896 (Version 2)
Quarter: 2022Q1

REPORT INFORMATION
  Report Type: Spontaneous
  Country: US (occurrence: US)
  Receive Date: 20210713
  Receipt Date: 20220125
  Transmission Date: 20220423
  Serious: Yes (Other)
  Sender: FDA-Public Use
  Company Number: US-GLAXOSMITHKLINE-US2021AMR150923

PATIENT
  Age: 67 Year
  Sex: Female

DRUGS (7)
  1. WELLBUTRIN [Suspect]
     Active Substance: BUPROPION HYDROCHLORIDE
     Indication: Product used for unknown indication
     Dosage: UNK
  2. ADVAIR HFA [Suspect]
     Active Substance: FLUTICASONE PROPIONATE\SALMETEROL XINAFOATE
     Indication: Product used for unknown indication
     Dosage: UNK
  3. OFEV [Suspect]
     Active Substance: NINTEDANIB
     Indication: Idiopathic pulmonary fibrosis
     Dosage: 100 MG, BID (100 MG)
     Route: 048
     Dates: start: 20201109
  4. OFEV [Suspect]
     Active Substance: NINTEDANIB
     Dosage: 150 MG, BID
     Route: 048
     Dates: start: 20201111, end: 20201120
  5. OFEV [Suspect]
     Active Substance: NINTEDANIB
     Dosage: 100 MG, BID
     Route: 048
     Dates: start: 20210120
  6. LOPERAMIDE [Suspect]
     Active Substance: LOPERAMIDE
     Indication: Diarrhoea
     Dosage: 2 DF, QD
  7. LOPERAMIDE [Suspect]
     Active Substance: LOPERAMIDE
     Dosage: 1 DF, QD

REACTIONS (19)
  - Diabetes mellitus [Unknown]
  - Productive cough [Unknown]
  - Thinking abnormal [Unknown]
  - Balance disorder [Unknown]
  - Thinking abnormal [Not Recovered/Not Resolved]
  - Diarrhoea [Not Recovered/Not Resolved]
  - Malaise [Not Recovered/Not Resolved]
  - Decreased appetite [Unknown]
  - Oral candidiasis [Recovered/Resolved]
  - Colitis [Unknown]
  - Anxiety [Unknown]
  - Constipation [Unknown]
  - Insomnia [Unknown]
  - Tremor [Unknown]
  - Dizziness [Unknown]
  - Vomiting [Not Recovered/Not Resolved]
  - Nausea [Not Recovered/Not Resolved]
  - Intentional overdose [Unknown]
  - Alopecia [Not Recovered/Not Resolved]

NARRATIVE: CASE EVENT DATE: 20201111
